FAERS Safety Report 6202088-4 (Version None)
Quarter: 2009Q2

REPORT INFORMATION
  Report Type: 
  Country: None (occurrence: None)
  Receive Date: 20090520
  Receipt Date: 20090507
  Transmission Date: 20091009
  Serious: Yes (Death)
  Sender: FDA-Public Use
  Company Number: 2009AL002878

PATIENT
  Age: 85 Year
  Sex: Female

DRUGS (22)
  1. DIGOXIN [Suspect]
     Dosage: PO
     Route: 048
  2. COUMADIN [Concomitant]
  3. AMIODARONE HCL [Concomitant]
  4. DIOVAN [Concomitant]
  5. SYNTHROID [Concomitant]
  6. POTASSIUM CHLORIDE [Concomitant]
  7. SILVER [Concomitant]
  8. LORTAB [Concomitant]
  9. CELEBREX [Concomitant]
  10. FOSAMAX [Concomitant]
  11. NORVASC [Concomitant]
  12. LASIX [Concomitant]
  13. CENTRUM [Concomitant]
  14. COREG [Concomitant]
  15. ACETAMINOPHEN [Concomitant]
  16. CALCIUM [Concomitant]
  17. CORDARONE [Concomitant]
  18. NITROGLYCERIN [Concomitant]
  19. FUROSEMIDE [Concomitant]
  20. APRELSOINE [Concomitant]
  21. HYDRALAZINE HCL [Concomitant]
  22. KLOR-CON [Concomitant]

REACTIONS (12)
  - ANOREXIA [None]
  - CARDIAC FAILURE CONGESTIVE [None]
  - CORONARY ARTERY DISEASE [None]
  - DIARRHOEA [None]
  - FATIGUE [None]
  - HEART INJURY [None]
  - HYPERHIDROSIS [None]
  - INJURY [None]
  - NAUSEA [None]
  - RENAL FAILURE [None]
  - VOMITING [None]
  - WEIGHT DECREASED [None]
